FAERS Safety Report 4899738-1 (Version None)
Quarter: 2006Q1

REPORT INFORMATION
  Report Type: 
  Country: None (occurrence: None)
  Receive Date: 20060131
  Receipt Date: 20060117
  Transmission Date: 20060701
  Serious: Yes (Life-Threatening, Hospitalization)
  Sender: FDA-Public Use
  Company Number: 217760

PATIENT
  Age: 48 Year
  Sex: Female
  Weight: 100.7 kg

DRUGS (9)
  1. BEVACIZUMAB (BEVACIZUMAB) PWDR + SOLVENT, INFUSION SOLN, 100MG [Suspect]
     Indication: OVARIAN CANCER
     Dosage: UNK, Q3W; INTRAVENOUS; 15MG/KG, Q3W;
     Route: 042
     Dates: start: 20050302, end: 20050525
  2. BEVACIZUMAB (BEVACIZUMAB) PWDR + SOLVENT, INFUSION SOLN, 100MG [Suspect]
     Indication: OVARIAN CANCER
     Dosage: UNK, Q3W; INTRAVENOUS; 15MG/KG, Q3W;
     Route: 042
     Dates: start: 20050601, end: 20050817
  3. SENNA [Concomitant]
  4. ESTROGENIC HORM SUBSTANCES TAB [Concomitant]
  5. WARFARIN SODIUM [Concomitant]
  6. LISINOPRIL [Concomitant]
  7. EPOETIN ALFA [Concomitant]
  8. PREDNISONE [Concomitant]
  9. DECADRON [Concomitant]

REACTIONS (54)
  - ABDOMINAL ADHESIONS [None]
  - ACTIVATED PARTIAL THROMBOPLASTIN TIME PROLONGED [None]
  - ASTHENIA [None]
  - ATELECTASIS [None]
  - ATRIAL FIBRILLATION [None]
  - BLOOD CREATINE PHOSPHOKINASE INCREASED [None]
  - BLOOD LACTIC ACID INCREASED [None]
  - BLOOD PH DECREASED [None]
  - BLOOD SODIUM DECREASED [None]
  - CARBOHYDRATE ANTIGEN 125 INCREASED [None]
  - CEREBELLAR SYNDROME [None]
  - CEREBRAL ISCHAEMIA [None]
  - COLLAPSE OF LUNG [None]
  - DEHYDRATION [None]
  - DIARRHOEA [None]
  - DIPLOPIA [None]
  - DRUG INEFFECTIVE [None]
  - DYSARTHRIA [None]
  - ELECTROCARDIOGRAM ST SEGMENT ABNORMAL [None]
  - ELECTROCARDIOGRAM T WAVE ABNORMAL [None]
  - ERYTHEMA [None]
  - GAIT DISTURBANCE [None]
  - GASTROINTESTINAL PERFORATION [None]
  - GASTROINTESTINAL STOMA COMPLICATION [None]
  - GAZE PALSY [None]
  - GENERAL PHYSICAL HEALTH DETERIORATION [None]
  - HAEMATOCRIT DECREASED [None]
  - HAEMOGLOBIN DECREASED [None]
  - HEADACHE [None]
  - HYPOTENSION [None]
  - IMPLANT SITE EFFUSION [None]
  - IMPLANT SITE HAEMORRHAGE [None]
  - INFLAMMATION [None]
  - METASTASES TO CENTRAL NERVOUS SYSTEM [None]
  - METASTASES TO MENINGES [None]
  - NEUTROPENIA [None]
  - NYSTAGMUS [None]
  - OPEN WOUND [None]
  - PERITONEAL DISORDER [None]
  - PLEURAL EFFUSION [None]
  - POLLAKIURIA [None]
  - POST PROCEDURAL COMPLICATION [None]
  - PULMONARY HYPERTENSION [None]
  - PULMONARY OEDEMA [None]
  - RENAL FAILURE ACUTE [None]
  - SENSORY LOSS [None]
  - SEPSIS [None]
  - SINUS TACHYCARDIA [None]
  - SYNCOPE [None]
  - TREMOR [None]
  - VENTRICULAR DYSFUNCTION [None]
  - VENTRICULAR HYPOKINESIA [None]
  - VISION BLURRED [None]
  - WOUND NECROSIS [None]
